FAERS Safety Report 6230750-6 (Version None)
Quarter: 2009Q2

REPORT INFORMATION
  Report Type: 
  Country: None (occurrence: None)
  Receive Date: 20090616
  Receipt Date: 20090604
  Transmission Date: 20091009
  Serious: Yes (Other)
  Sender: FDA-Public Use
  Company Number: US-PFIZER INC-2006007081

PATIENT
  Sex: Female

DRUGS (10)
  1. PROVERA [Suspect]
     Indication: HORMONE REPLACEMENT THERAPY
     Dosage: UNK
     Route: 048
     Dates: start: 19920606, end: 19951031
  2. PREMARIN [Suspect]
     Indication: HORMONE REPLACEMENT THERAPY
     Dosage: UNK
     Dates: start: 19920228, end: 19951031
  3. PREMPRO [Suspect]
     Indication: HORMONE REPLACEMENT THERAPY
     Dosage: UNK
     Dates: start: 19951101, end: 20000322
  4. TRANDATE [Concomitant]
     Indication: HYPERTENSION
     Dosage: UNK
     Dates: start: 19940901
  5. PRILOSEC [Concomitant]
     Indication: GASTROOESOPHAGEAL REFLUX DISEASE
     Dosage: UNK
     Dates: start: 19990301, end: 20040101
  6. PREVACID [Concomitant]
     Indication: GASTROOESOPHAGEAL REFLUX DISEASE
     Dosage: UNK
     Dates: start: 19971101
  7. ORNADE [Concomitant]
     Indication: SINUS DISORDER
     Dosage: UNK
     Dates: end: 20000701
  8. URISED [Concomitant]
     Indication: NEUROGENIC BLADDER
     Dosage: UNK
  9. SYNTHROID [Concomitant]
     Indication: HYPOTHYROIDISM
     Dosage: UNK
  10. DYAZIDE [Concomitant]
     Indication: HYPERTENSION
     Dosage: UNK

REACTIONS (6)
  - BREAST CANCER [None]
  - BREAST CANCER FEMALE [None]
  - HYPOAESTHESIA [None]
  - MUSCULAR WEAKNESS [None]
  - MUSCULOSKELETAL CHEST PAIN [None]
  - SCAR [None]
